FAERS Safety Report 23504781 (Version 1)
Quarter: 2024Q1

REPORT INFORMATION
  Report Type: Spontaneous
  Country: GB (occurrence: GB)
  Receive Date: 20240209
  Receipt Date: 20240209
  Transmission Date: 20240410
  Serious: No
  Sender: FDA-Public Use
  Company Number: None

PATIENT
  Age: 91 Year
  Sex: Female
  Weight: 47 kg

DRUGS (6)
  1. CEPHALEXIN [Suspect]
     Active Substance: CEPHALEXIN
     Indication: Urinary tract infection
     Dosage: 3 DOSAGE FORM, QD (250MG/5ML) ORAL SUSPENSION
     Route: 048
     Dates: start: 20231004
  2. AMLODIPINE [Concomitant]
     Active Substance: AMLODIPINE BESYLATE
     Indication: Ill-defined disorder
     Dosage: 1 DOSAGE FORM, OD (ONE TABLET TO BE TAKEN ONCE A DAY IN THE MORNIN)
     Route: 065
     Dates: start: 20231004
  3. CALCIUM CARBONATE\SODIUM ALGINATE\SODIUM BICARBONATE [Concomitant]
     Active Substance: CALCIUM CARBONATE\SODIUM ALGINATE\SODIUM BICARBONATE
     Indication: Ill-defined disorder
     Dosage: UNK (THREE X 5ML SPOONFUL TO BE TAKEN AFTER MEALS AN)
     Route: 065
     Dates: start: 20221229
  4. POLYETHYLENE GLYCOL 3350\POTASSIUM CHLORIDE\SODIUM BICARBONATE\SODIUM [Concomitant]
     Active Substance: POLYETHYLENE GLYCOL 3350\POTASSIUM CHLORIDE\SODIUM BICARBONATE\SODIUM CHLORIDE
     Indication: Ill-defined disorder
     Dosage: UNK (TAKE ONE OR TWO SACHETS DISSOLVED IN WATER (125.)
     Route: 065
     Dates: start: 20221229
  5. ACETAMINOPHEN [Concomitant]
     Active Substance: ACETAMINOPHEN
     Indication: Ill-defined disorder
     Dosage: UNK (TAKE ONE-TWO TABLET UP TO FOUR TIMES A DAY)
     Route: 065
     Dates: start: 20221229
  6. Stexerol-D3 [Concomitant]
     Indication: Ill-defined disorder
     Dosage: 1 DOSAGE FORM, QD (ONE TABLET TO BE TAKEN ONCE A DAY FOR MAINTENANCE)
     Route: 065
     Dates: start: 20230113

REACTIONS (1)
  - Diarrhoea [Recovered/Resolved]
